FAERS Safety Report 6546277-8 (Version None)
Quarter: 2010Q1

REPORT INFORMATION
  Report Type: 
  Country: None (occurrence: None)
  Receive Date: 20100122
  Receipt Date: 20100119
  Transmission Date: 20100710
  Serious: Yes (Other)
  Sender: FDA-Public Use
  Company Number: PR-BAYER-200938645NA

PATIENT
  Age: 45 Year
  Sex: Male

DRUGS (6)
  1. AVELOX [Suspect]
     Indication: ACUTE SINUSITIS
     Dosage: TOTAL DAILY DOSE: 400 MG  UNIT DOSE: 400 MG
     Route: 048
  2. PHENYLEPHRINE HYDROCHLORIDE [Concomitant]
  3. HYDROCODONE BITARTRATE [Concomitant]
  4. GUAIFENESIN [Concomitant]
  5. CELESTONE [Concomitant]
  6. ATACAND [Concomitant]
     Dosage: TOTAL DAILY DOSE: 16 MG
     Route: 048

REACTIONS (3)
  - FIBULA FRACTURE [None]
  - LOSS OF CONSCIOUSNESS [None]
  - SYNCOPE [None]
